FAERS Safety Report 24350826 (Version 1)
Quarter: 2024Q3

REPORT INFORMATION
  Report Type: Spontaneous
  Country: US (occurrence: US)
  Receive Date: 20240923
  Receipt Date: 20240923
  Transmission Date: 20241017
  Serious: No
  Sender: ROCHE
  Company Number: US-ROCHE-3525646

PATIENT
  Sex: Female
  Weight: 69.4 kg

DRUGS (6)
  1. HERCEPTIN [Suspect]
     Active Substance: TRASTUZUMAB
     Indication: Inflammatory carcinoma of the breast
     Dosage: THE PATIENT STATED THE DOSE IS UNKNOWN TO HER BUT IT WAS THE STANDARD OF CARE [DOSE] ;ONGOING: NO
     Route: 042
     Dates: start: 202308, end: 20240122
  2. PERJETA [Suspect]
     Active Substance: PERTUZUMAB
     Indication: Inflammatory carcinoma of the breast
     Dosage: THE PATIENT STATED THE DOSE IS UNKNOWN TO HER BUT IT WAS THE STANDARD OF CARE [DOSE] ;ONGOING: NO
     Route: 065
     Dates: start: 202308, end: 20240122
  3. PHESGO [Suspect]
     Active Substance: HYALURONIDASE-ZZXF\PERTUZUMAB\TRASTUZUMAB
     Indication: Inflammatory carcinoma of the breast
     Dosage: THE PATIENT STATED IT IS INJECTED INTO THE LEFT THIGH AND HER HCP SCHEDULED IT FOR  EVERY 3 WEEKS ;O
     Route: 058
     Dates: start: 20240205
  4. ABRAXANE [Suspect]
     Active Substance: PACLITAXEL
     Indication: Inflammatory carcinoma of the breast
     Route: 042
     Dates: end: 20240122
  5. LOSARTAN [Concomitant]
     Active Substance: LOSARTAN\LOSARTAN POTASSIUM
     Dosage: 25 MG BUT SHE WAS NOW BUMPED UP TO 50 MG SOMEWHERE IN THE LAST FEW WEEKS
     Dates: start: 20240215
  6. FUROSEMIDE [Concomitant]
     Active Substance: FUROSEMIDE
     Dates: start: 20240215

REACTIONS (6)
  - Blood pressure increased [Unknown]
  - Off label use [Unknown]
  - Product dose omission issue [Unknown]
  - Pericarditis [Unknown]
  - Ventricular hypertrophy [Unknown]
  - Brain fog [Unknown]

NARRATIVE: CASE EVENT DATE: 20240205
